FAERS Safety Report 25251039 (Version 1)
Quarter: 2025Q2

REPORT INFORMATION
  Report Type: Spontaneous
  Country: FR (occurrence: FR)
  Receive Date: 20250429
  Receipt Date: 20250429
  Transmission Date: 20250716
  Serious: Yes (Hospitalization)
  Sender: ABBVIE
  Company Number: None

PATIENT
  Age: 1 Day
  Sex: Male
  Weight: 3.045 kg

DRUGS (4)
  1. CITALOPRAM [Suspect]
     Active Substance: CITALOPRAM
     Indication: Bipolar disorder
     Dosage: 40 MILLIGRAM
     Route: 064
  2. OXAZEPAM [Suspect]
     Active Substance: OXAZEPAM
     Indication: Bipolar disorder
     Dosage: 50 MILLIGRAM
     Route: 064
  3. LAMOTRIGINE [Suspect]
     Active Substance: LAMOTRIGINE
     Indication: Bipolar disorder
     Dosage: 400 MILLIGRAM
     Route: 064
  4. LEVOTHYROXINE [Suspect]
     Active Substance: LEVOTHYROXINE
     Indication: Bipolar disorder
     Dosage: 75 MICROGRAM
     Route: 064

REACTIONS (4)
  - Tachypnoea [Not Recovered/Not Resolved]
  - Product use in unapproved indication [Unknown]
  - Foetal exposure during pregnancy [Recovered/Resolved]
  - Agitation [Not Recovered/Not Resolved]
